FAERS Safety Report 7578868-X (Version None)
Quarter: 2011Q2

REPORT INFORMATION
  Report Type: 
  Country: None (occurrence: None)
  Receive Date: 20110628
  Receipt Date: 20110621
  Transmission Date: 20111010
  Serious: Yes (Death)
  Sender: FDA-Public Use
  Company Number: US-CELGENEUS-163-21880-11062842

PATIENT
  Age: 80 Year
  Sex: Female

DRUGS (10)
  1. ACYCLOVIR [Concomitant]
     Route: 065
  2. NEURONTIN [Concomitant]
     Route: 065
  3. ZOMETA [Concomitant]
     Route: 065
  4. OXYCODONE HCL [Concomitant]
     Route: 065
  5. REVLIMID [Suspect]
     Indication: MULTIPLE MYELOMA
     Dosage: 15 MILLIGRAM
     Route: 048
     Dates: start: 20090601, end: 20090801
  6. DECADRON [Concomitant]
     Route: 065
  7. OXYCONTIN [Concomitant]
     Route: 065
  8. VITAMIN B6 [Concomitant]
     Route: 065
  9. K-TAB [Concomitant]
     Route: 048
  10. ASCORBIC ACID [Concomitant]
     Route: 065

REACTIONS (3)
  - INFECTION [None]
  - DEATH [None]
  - ASTHENIA [None]
